FAERS Safety Report 13682159 (Version 1)
Quarter: 2017Q2

REPORT INFORMATION
  Report Type: Spontaneous
  Country: US (occurrence: US)
  Receive Date: 20170623
  Receipt Date: 20170623
  Transmission Date: 20170830
  Serious: No
  Sender: FDA-Public Use
  Company Number: US-IPSEN BIOPHARMACEUTICALS, INC.-2016-04014

PATIENT
  Age: 41 Year
  Sex: Female
  Weight: 49 kg

DRUGS (15)
  1. DYSPORT [Suspect]
     Active Substance: ABOBOTULINUMTOXINA
     Indication: SKIN WRINKLING
     Dosage: NOT REPORTED (BUT 15 IU INTO LEFT ORBICULARIS)
     Route: 065
     Dates: start: 20160427, end: 20160427
  2. PERLANE [Suspect]
     Active Substance: HYALURONIC ACID
     Indication: SKIN COSMETIC PROCEDURE
     Dates: start: 201504, end: 201504
  3. CLARITIN-D NOS [Concomitant]
     Active Substance: LORATADINE\PSEUDOEPHEDRINE SULFATE
  4. SPIRONOLACTONE. [Concomitant]
     Active Substance: SPIRONOLACTONE
     Dates: start: 201602
  5. DYSPORT [Suspect]
     Active Substance: ABOBOTULINUMTOXINA
     Indication: SKIN WRINKLING
  6. MYLAN ESTRADIOL TRANSDERMAL SYSTEM [Concomitant]
     Dates: start: 2016
  7. DYSPORT [Suspect]
     Active Substance: ABOBOTULINUMTOXINA
     Indication: SKIN WRINKLING
  8. PERLANE [Suspect]
     Active Substance: HYALURONIC ACID
     Dates: start: 20160427, end: 20160427
  9. ALLEGRA [Concomitant]
     Active Substance: FEXOFENADINE HYDROCHLORIDE
  10. DHEA [Concomitant]
     Active Substance: PRASTERONE
     Dates: start: 201603
  11. DYSPORT [Suspect]
     Active Substance: ABOBOTULINUMTOXINA
     Indication: PRODUCT USE IN UNAPPROVED INDICATION
  12. NEOSYNEPHRINE [Suspect]
     Active Substance: PHENYLEPHRINE HYDROCHLORIDE
     Indication: EYELID PTOSIS
     Dates: start: 20160502
  13. THYROID MEDICATION WITH T3 AND T4 BIO-IDENTICAL COMPOUND PRODUCT [Concomitant]
     Dates: start: 201603
  14. DYSPORT [Suspect]
     Active Substance: ABOBOTULINUMTOXINA
     Indication: SKIN WRINKLING
     Dosage: NOT REPORTED
     Route: 065
     Dates: start: 201504, end: 201504
  15. DYSPORT [Suspect]
     Active Substance: ABOBOTULINUMTOXINA
     Indication: SKIN WRINKLING

REACTIONS (11)
  - Headache [Unknown]
  - Crying [Unknown]
  - Eyelid ptosis [Recovering/Resolving]
  - Headache [Recovered/Resolved]
  - Influenza like illness [Unknown]
  - Fatigue [Unknown]
  - Oropharyngeal pain [Recovered/Resolved]
  - Upper-airway cough syndrome [Recovered/Resolved]
  - Anxiety [Unknown]
  - Dizziness [Unknown]
  - Stress [Unknown]

NARRATIVE: CASE EVENT DATE: 2015
